FAERS Safety Report 23824599 (Version 1)
Quarter: 2024Q2

REPORT INFORMATION
  Report Type: Spontaneous
  Country: IT (occurrence: IT)
  Receive Date: 20240507
  Receipt Date: 20240507
  Transmission Date: 20240716
  Serious: Yes (Other)
  Sender: FDA-Public Use
  Company Number: IT-AMGEN-ITASP2024087131

PATIENT
  Age: 56 Year
  Sex: Male

DRUGS (10)
  1. FILGRASTIM [Suspect]
     Active Substance: FILGRASTIM
     Indication: Autologous haematopoietic stem cell transplant
     Dosage: 5.0 MICROGRAM/KILOGRAM
     Route: 065
  2. CYCLOPHOSPHAMIDE [Concomitant]
     Active Substance: CYCLOPHOSPHAMIDE
     Indication: Autologous haematopoietic stem cell transplant
     Dosage: 4 GRAM PER SQUARE METRE
     Route: 065
  3. PREDNISONE [Concomitant]
     Active Substance: PREDNISONE
     Indication: Myelin oligodendrocyte glycoprotein antibody-associated disease
     Dosage: 50 MILLIGRAM/KILOGRAM
     Dates: start: 201807
  4. PREDNISONE [Concomitant]
     Active Substance: PREDNISONE
     Dosage: 50 MILLIGRAM
     Dates: start: 201909
  5. PREDNISONE [Concomitant]
     Active Substance: PREDNISONE
     Dosage: 25 MILLIGRAM, QD
     Dates: start: 202001
  6. PREDNISONE [Concomitant]
     Active Substance: PREDNISONE
     Dosage: 18.5 UNK
     Dates: start: 202004
  7. PREDNISONE [Concomitant]
     Active Substance: PREDNISONE
     Dosage: 25.0 UNK
     Dates: start: 202004
  8. PREDNISONE [Concomitant]
     Active Substance: PREDNISONE
     Dosage: 50 MICROGRAM/KILOGRAM, QD
     Dates: end: 202202
  9. RITUXIMAB [Concomitant]
     Active Substance: RITUXIMAB
     Indication: Myelin oligodendrocyte glycoprotein antibody-associated disease
     Dosage: UNK
     Dates: start: 201909
  10. TOCILIZUMAB [Concomitant]
     Active Substance: TOCILIZUMAB
     Indication: Myelin oligodendrocyte glycoprotein antibody-associated disease
     Dosage: 8.0 MICROGRAM/KILOGRAM, QMO
     Dates: start: 202006

REACTIONS (3)
  - Pathological fracture [Unknown]
  - Staphylococcus test positive [Unknown]
  - Hyponatraemia [Recovered/Resolved]

NARRATIVE: CASE EVENT DATE: 20210101
